FAERS Safety Report 4709565-3 (Version None)
Quarter: 2005Q3

REPORT INFORMATION
  Report Type: 
  Country: None (occurrence: None)
  Receive Date: 20050707
  Receipt Date: 20050519
  Transmission Date: 20060218
  Serious: Yes (Death)
  Sender: FDA-Public Use
  Company Number: PAR_0105_2005

PATIENT
  Age: 3 Year
  Sex: Female

DRUGS (2)
  1. IBUPROFEN [Suspect]
     Dosage: DF
  2. CHLORPHENIRAMINE W/HYDROCODONE [Suspect]
     Dosage: DF

REACTIONS (10)
  - ACCIDENTAL OVERDOSE [None]
  - BLOOD BICARBONATE DECREASED [None]
  - BLOOD PH DECREASED [None]
  - BRAIN DEATH [None]
  - BRAIN HERNIATION [None]
  - CEREBRAL INFARCTION [None]
  - CYANOSIS [None]
  - DEPRESSED LEVEL OF CONSCIOUSNESS [None]
  - HEART RATE INCREASED [None]
  - SOMNOLENCE [None]
